FAERS Safety Report 24657518 (Version 1)
Quarter: 2024Q4

REPORT INFORMATION
  Report Type: Spontaneous
  Country: US (occurrence: US)
  Receive Date: 20241125
  Receipt Date: 20241125
  Transmission Date: 20250115
  Serious: No
  Sender: PADAGIS
  Company Number: US-PADAGIS-2024PAD01823

PATIENT

DRUGS (2)
  1. ESTRADIOL VAGINAL [Suspect]
     Active Substance: ESTRADIOL
     Indication: Urinary tract infection
     Dosage: UNK
     Route: 065
     Dates: start: 20240723
  2. ESTRADIOL VAGINAL [Suspect]
     Active Substance: ESTRADIOL
     Dosage: UNK, GLENMARK MANUFACTURER
     Route: 065

REACTIONS (5)
  - Urine odour abnormal [Not Recovered/Not Resolved]
  - Urine abnormality [Not Recovered/Not Resolved]
  - Bladder pain [Recovering/Resolving]
  - Pelvic pain [Not Recovered/Not Resolved]
  - Drug ineffective for unapproved indication [Unknown]

NARRATIVE: CASE EVENT DATE: 20240723
